FAERS Safety Report 16692517 (Version 1)
Quarter: 2019Q4

REPORT INFORMATION
  Report Type: Spontaneous
  Country: CA (occurrence: CA)
  Receive Date: 20190809
  Receipt Date: 20190809
  Transmission Date: 20200122
  Serious: Yes (Hospitalization)
  Sender: FDA-Public Use
  Company Number: None

PATIENT
  Age: 27 Year
  Sex: Male
  Weight: 72 kg

DRUGS (2)
  1. METHIMAZOLE. [Suspect]
     Active Substance: METHIMAZOLE
     Route: 048
     Dates: start: 20190113, end: 20190127
  2. METOPROLOL. [Concomitant]
     Active Substance: METOPROLOL
     Dates: start: 20190101

REACTIONS (7)
  - Rash [None]
  - Hypomagnesaemia [None]
  - Hypokalaemia [None]
  - Tachycardia [None]
  - Hypophosphataemia [None]
  - Hepatic enzyme increased [None]
  - Chest pain [None]

NARRATIVE: CASE EVENT DATE: 20190127
